FAERS Safety Report 21490706 (Version 1)
Quarter: 2022Q4

REPORT INFORMATION
  Report Type: Spontaneous
  Country: US (occurrence: US)
  Receive Date: 20221021
  Receipt Date: 20221021
  Transmission Date: 20230113
  Serious: Yes (Disabling, Other)
  Sender: FDA-Public Use
  Company Number: US-NOVARTISPH-NVSC2022US234840

PATIENT
  Sex: Female

DRUGS (3)
  1. DUREZOL [Suspect]
     Active Substance: DIFLUPREDNATE
     Indication: Cataract
     Dosage: UNK
     Route: 065
  2. HUMIRA [Suspect]
     Active Substance: ADALIMUMAB
     Indication: Uveitis
     Dosage: UNK (CITRATE FREE)
     Route: 058
  3. HUMIRA [Suspect]
     Active Substance: ADALIMUMAB
     Indication: Intraocular pressure increased

REACTIONS (6)
  - Blindness [Unknown]
  - Cataract [Unknown]
  - Diabetes mellitus [Unknown]
  - Eye disorder [Unknown]
  - Intraocular pressure increased [Unknown]
  - Off label use [Unknown]
